FAERS Safety Report 9391316 (Version 1)
Quarter: 2013Q3

REPORT INFORMATION
  Report Type: Report from Study
  Country: US (occurrence: US)
  Receive Date: 20130709
  Receipt Date: 20130709
  Transmission Date: 20140515
  Serious: Yes (Other)
  Sender: FDA-Public Use
  Company Number: US-BAYER-2013-083229

PATIENT
  Age: 55 Year
  Sex: Male

DRUGS (1)
  1. STIVARGA [Suspect]
     Indication: COLON CANCER
     Dosage: DAILY DOSE 120 MG (AM X 21 DAYS)
     Route: 048
     Dates: start: 20130625

REACTIONS (7)
  - Constipation [None]
  - Stomatitis [None]
  - Throat tightness [None]
  - Hypoaesthesia oral [None]
  - Hypoaesthesia [None]
  - Dysphonia [None]
  - Oropharyngeal pain [None]
